FAERS Safety Report 10111101 (Version 1)
Quarter: 2014Q2

REPORT INFORMATION
  Report Type: Spontaneous
  Country: US (occurrence: US)
  Receive Date: 20140425
  Receipt Date: 20140425
  Transmission Date: 20141212
  Serious: Yes (Hospitalization)
  Sender: FDA-Public Use
  Company Number: US-SA-2014SA049609

PATIENT
  Age: 85 Year
  Sex: Female

DRUGS (1)
  1. LANTUS [Suspect]
     Indication: TYPE 2 DIABETES MELLITUS
     Dosage: DOSE: 36-40 UNITS?STARTED 5 YEARS AGO
     Route: 065

REACTIONS (2)
  - Hysterectomy [Unknown]
  - Abdominal distension [Unknown]
